FAERS Safety Report 20104950 (Version 2)
Quarter: 2021Q4

REPORT INFORMATION
  Report Type: Report from Study
  Country: CA (occurrence: CA)
  Receive Date: 20211124
  Receipt Date: 20211215
  Transmission Date: 20220303
  Serious: Yes (Hospitalization, Other)
  Sender: FDA-Public Use
  Company Number: CA-ABBVIE-21K-028-4171931-00

PATIENT
  Sex: Male

DRUGS (2)
  1. HUMIRA [Suspect]
     Active Substance: ADALIMUMAB
     Indication: Crohn^s disease
     Route: 058
     Dates: start: 20130513
  2. COVID-19 VACCINE [Concomitant]
     Indication: COVID-19 immunisation
     Route: 030
     Dates: start: 2021, end: 2021

REACTIONS (8)
  - Haemorrhage [Unknown]
  - Intestinal polyp [Unknown]
  - Loss of consciousness [Unknown]
  - Diarrhoea [Recovered/Resolved]
  - Flatulence [Unknown]
  - Hypoaesthesia [Recovering/Resolving]
  - Thrombosis [Unknown]
  - Hypoaesthesia [Not Recovered/Not Resolved]

NARRATIVE: CASE EVENT DATE: 20190101
